FAERS Safety Report 10080792 (Version 2)
Quarter: 2014Q2

REPORT INFORMATION
  Report Type: Spontaneous
  Country: US (occurrence: US)
  Receive Date: 20140416
  Receipt Date: 20140424
  Transmission Date: 20141212
  Serious: Yes (Hospitalization)
  Sender: FDA-Public Use
  Company Number: US-JNJFOC-20140406400

PATIENT
  Age: 85 Year
  Sex: Female
  Weight: 67.1 kg

DRUGS (16)
  1. XARELTO [Suspect]
     Indication: DEEP VEIN THROMBOSIS
     Route: 048
     Dates: start: 20121201
  2. XARELTO [Suspect]
     Indication: PULMONARY EMBOLISM
     Route: 048
     Dates: start: 20121201
  3. MIRAPEX [Concomitant]
     Route: 065
  4. DUONEBS [Concomitant]
     Route: 065
  5. PROTONIX [Concomitant]
     Route: 065
  6. VITAMIN D [Concomitant]
     Route: 065
  7. SYNTHROID [Concomitant]
     Route: 065
  8. COREG [Concomitant]
     Route: 065
  9. ZOCOR [Concomitant]
     Route: 065
  10. ADVAIR [Concomitant]
     Route: 065
  11. TESSALON [Concomitant]
     Route: 065
  12. ULTRAM [Concomitant]
     Route: 065
  13. EFFEXOR [Concomitant]
     Route: 065
  14. TUSSIONEX [Concomitant]
     Route: 065
  15. FLONASE [Concomitant]
     Route: 065
  16. XYZAL [Concomitant]
     Route: 065

REACTIONS (4)
  - Haemorrhagic anaemia [Recovered/Resolved]
  - Gastrointestinal haemorrhage [Recovering/Resolving]
  - Asthenia [Unknown]
  - Incorrect dose administered [Unknown]
